FAERS Safety Report 14696361 (Version 1)
Quarter: 2018Q1

REPORT INFORMATION
  Report Type: Spontaneous
  Country: US (occurrence: US)
  Receive Date: 20180329
  Receipt Date: 20180329
  Transmission Date: 20180509
  Serious: Yes (Hospitalization)
  Sender: FDA-Public Use
  Company Number: US-JNJFOC-20180314189

PATIENT
  Age: 8 Month
  Sex: Male
  Weight: 7.71 kg

DRUGS (1)
  1. AVEENO BABY ECZEMA THERAPY MOISTURIZING [Suspect]
     Active Substance: OATMEAL
     Indication: ECZEMA
     Route: 061
     Dates: start: 20180308, end: 20180308

REACTIONS (2)
  - Application site burn [Not Recovered/Not Resolved]
  - Application site hypersensitivity [Not Recovered/Not Resolved]

NARRATIVE: CASE EVENT DATE: 20180308
